FAERS Safety Report 5568361-8 (Version None)
Quarter: 2007Q4

REPORT INFORMATION
  Report Type: 
  Country: None (occurrence: None)
  Receive Date: 20071220
  Receipt Date: 20071213
  Transmission Date: 20080405
  Serious: Yes (Hospitalization, Other)
  Sender: FDA-Public Use
  Company Number: PHRM2007FR02821

PATIENT
  Age: 85 Year
  Sex: Male

DRUGS (2)
  1. PREVISCAN [Concomitant]
     Indication: ATRIAL FIBRILLATION
  2. GLEEVEC [Suspect]
     Indication: CHRONIC MYELOID LEUKAEMIA
     Dosage: 400 MG, QD
     Route: 048
     Dates: start: 20020101

REACTIONS (4)
  - ELECTROCARDIOGRAM ABNORMAL [None]
  - GENERALISED OEDEMA [None]
  - PLEURAL EFFUSION [None]
  - PULMONARY HYPERTENSION [None]
